FAERS Safety Report 16962257 (Version 9)
Quarter: 2021Q2

REPORT INFORMATION
  Report Type: Report from Study
  Country: US (occurrence: US)
  Receive Date: 20191025
  Receipt Date: 20210608
  Transmission Date: 20210716
  Serious: Yes (Death, Hospitalization)
  Sender: FDA-Public Use
  Company Number: US-ALNYLAM PHARMACEUTICALS, INC.-ALN-2019-000799

PATIENT

DRUGS (50)
  1. ENCORAFENIB [Concomitant]
     Active Substance: ENCORAFENIB
     Dosage: 225 MILLIGRAM, QD
     Route: 048
     Dates: start: 20190926
  2. SILDENAFIL. [Concomitant]
     Active Substance: SILDENAFIL
     Indication: ERECTILE DYSFUNCTION
     Dosage: 25 MILLIGRAM, PRN
     Route: 048
     Dates: start: 20150714
  3. TAPENTADOL HYDROCHLORIDE [Concomitant]
     Active Substance: TAPENTADOL HYDROCHLORIDE
     Indication: NEURALGIA
     Dosage: 50 MILLIGRAM, QD
     Route: 048
     Dates: start: 20140224
  4. BINIMETINIB [Concomitant]
     Active Substance: BINIMETINIB
     Dosage: 15 MILLIGRAM, BID
     Route: 048
  5. MORPHINE [Concomitant]
     Active Substance: MORPHINE
     Indication: PAIN
     Dosage: 2 MILLIGRAM, PRN
     Route: 042
     Dates: start: 20190927, end: 20190928
  6. SODIUM CHLORIDE. [Concomitant]
     Active Substance: SODIUM CHLORIDE
     Indication: DEHYDRATION
     Dosage: 35 MILLILITER PER HOUR
     Route: 042
     Dates: start: 20191011, end: 20191011
  7. SODIUM CHLORIDE. [Concomitant]
     Active Substance: SODIUM CHLORIDE
     Dosage: 50 MILLILITER PER HOUR
     Route: 042
     Dates: start: 20190926, end: 20190927
  8. ALN?TTR02 [Suspect]
     Active Substance: PATISIRAN SODIUM
     Indication: HEREDITARY NEUROPATHIC AMYLOIDOSIS
     Dosage: 0.3 MILLIGRAM/KILOGRAM, Q3W
     Route: 042
     Dates: start: 20160523, end: 20200219
  9. DIPHENHYDRAMINE. [Concomitant]
     Active Substance: DIPHENHYDRAMINE
     Indication: PROPHYLAXIS
     Dosage: 50 MILLIGRAM, Q3W
     Route: 042
     Dates: start: 20160523
  10. LOMOTIL [Concomitant]
     Active Substance: ATROPINE SULFATE\DIPHENOXYLATE HYDROCHLORIDE
     Indication: DIARRHOEA
     Dosage: 1?2 TBL, QD PRN
     Route: 048
     Dates: start: 20140609
  11. OMEGA?3 FATTY ACIDS [Concomitant]
     Active Substance: OMEGA-3 FATTY ACIDS
     Indication: SUPPLEMENTATION THERAPY
     Dosage: 1200 MILLIGRAM, QD
     Route: 048
     Dates: start: 20140115
  12. NEXIUM [Concomitant]
     Active Substance: ESOMEPRAZOLE MAGNESIUM
     Indication: NAUSEA
     Dosage: 40 MILLIGRAM, BID
     Route: 048
     Dates: start: 20190928
  13. SODIUM CHLORIDE. [Concomitant]
     Active Substance: SODIUM CHLORIDE
     Dosage: 2000 MILLILITER, SINGLE
     Route: 042
     Dates: start: 20190926, end: 20190926
  14. SODIUM CHLORIDE. [Concomitant]
     Active Substance: SODIUM CHLORIDE
     Dosage: 3 MILLILITER, TID
     Route: 042
     Dates: start: 20191023, end: 20191025
  15. LISINOPRIL. [Concomitant]
     Active Substance: LISINOPRIL
     Dosage: 20 MILLIGRAM, QD
     Route: 048
     Dates: start: 20190929
  16. BINIMETINIB [Concomitant]
     Active Substance: BINIMETINIB
     Indication: MALIGNANT MELANOMA STAGE III
     Dosage: 45 MILLIGRAM, BID
     Route: 048
     Dates: start: 20190117
  17. GADAVIST [Concomitant]
     Active Substance: GADOBUTROL
     Dosage: 7 MILLILITER, SINGLE
     Route: 042
     Dates: start: 20191024, end: 20191024
  18. FLUCONAZOLE. [Concomitant]
     Active Substance: FLUCONAZOLE
     Indication: INFECTION
     Dosage: 800 MILLIGRAM, QD
     Route: 048
     Dates: start: 20191022, end: 20191023
  19. PARACETAMOL [Concomitant]
     Active Substance: ACETAMINOPHEN
     Indication: PROPHYLAXIS
     Dosage: 650 MILLIGRAM, Q3W
     Route: 048
     Dates: start: 20160523, end: 20161129
  20. PARACETAMOL [Concomitant]
     Active Substance: ACETAMINOPHEN
     Dosage: 500 MILLIGRAM, Q3W
     Route: 048
     Dates: start: 20161221
  21. DEXAMETHASONE. [Concomitant]
     Active Substance: DEXAMETHASONE
     Dosage: 7.5 MILLIGRAM, Q3W
     Route: 042
     Dates: start: 20190410, end: 20190523
  22. DEXAMETHASONE. [Concomitant]
     Active Substance: DEXAMETHASONE
     Dosage: 5 MILLIGRAM, Q3W
     Route: 042
     Dates: start: 20190613
  23. ASPIRIN BUFFERED [Concomitant]
     Active Substance: ASPIRIN
     Indication: CEREBROVASCULAR ACCIDENT
     Dosage: 300 MILLIGRAM, QD
     Route: 054
     Dates: start: 20191010, end: 20191010
  24. GADAVIST [Concomitant]
     Active Substance: GADOBUTROL
     Dosage: 7 MILLILITER, SINGLE
     Route: 042
     Dates: start: 20190926, end: 20190926
  25. OMNIPAQUE [Concomitant]
     Active Substance: IOHEXOL
     Indication: IMAGING PROCEDURE
     Dosage: 240 MILLIGRAM, SINGLE
     Route: 042
     Dates: start: 20190926, end: 20190926
  26. FAMOTIDINE. [Concomitant]
     Active Substance: FAMOTIDINE
     Indication: PROPHYLAXIS
     Dosage: 20 MILLIGRAM, Q3W
     Route: 042
     Dates: start: 20160523
  27. DIFLUNISAL. [Concomitant]
     Active Substance: DIFLUNISAL
     Indication: AMYLOIDOSIS
     Dosage: 250 MILLIGRAM, BID
     Route: 048
     Dates: start: 20131022
  28. LISINOPRIL. [Concomitant]
     Active Substance: LISINOPRIL
     Indication: HYPERTENSION
     Dosage: 10 MILLIGRAM, QD
     Route: 048
     Dates: start: 20190224, end: 20190928
  29. ACETAMINOPHENE [Concomitant]
     Active Substance: ACETAMINOPHEN
     Indication: PAIN
     Dosage: 650 MILLIGRAM, PRN
     Route: 048
     Dates: start: 20190927, end: 20190928
  30. NEXIUM [Concomitant]
     Active Substance: ESOMEPRAZOLE MAGNESIUM
     Indication: VOMITING
  31. PROTONIX [Concomitant]
     Active Substance: PANTOPRAZOLE SODIUM
     Indication: VOMITING
     Dosage: 40 MILLIGRAM, BID
     Route: 048
     Dates: start: 20191011, end: 20191011
  32. PROTONIX [Concomitant]
     Active Substance: PANTOPRAZOLE SODIUM
     Indication: GASTRITIS
     Dosage: 40 MILLIGRAM, QD
     Route: 048
     Dates: start: 20191024, end: 20191025
  33. ZOFRAN [Concomitant]
     Active Substance: ONDANSETRON HYDROCHLORIDE
     Indication: NAUSEA
     Dosage: 4 MILLIGRAM, PRN
     Route: 042
     Dates: start: 20190927, end: 20190928
  34. MULTIVITAMIN [Concomitant]
     Active Substance: VITAMINS
     Indication: SUPPLEMENTATION THERAPY
     Dosage: 1 DOSAGE FORM, QD
     Route: 048
     Dates: start: 20111221
  35. NORVASC [Concomitant]
     Active Substance: AMLODIPINE BESYLATE
     Indication: HYPERTENSION
     Dosage: 5 MILLIGRAM, QD
     Route: 048
     Dates: start: 20190928
  36. FLOMAX [Concomitant]
     Active Substance: TAMSULOSIN HYDROCHLORIDE
     Indication: BENIGN PROSTATIC HYPERPLASIA
     Dosage: 0.4 MILLIGRAM, QD
     Route: 048
     Dates: start: 20190927
  37. ISOVUE 300 [Concomitant]
     Active Substance: IOPAMIDOL
     Indication: IMAGING PROCEDURE
     Dosage: 100 MILLILITER, SINGLE
     Route: 042
     Dates: start: 20190926, end: 20190928
  38. DEXAMETHASONE. [Concomitant]
     Active Substance: DEXAMETHASONE
     Dosage: 4 MILLIGRAM, TID
     Route: 048
     Dates: start: 20191018
  39. ASPIRIN BUFFERED [Concomitant]
     Active Substance: ASPIRIN
     Dosage: 325 MILLIGRAM, QD
     Route: 048
     Dates: start: 20191011
  40. PROSCAR [Concomitant]
     Active Substance: FINASTERIDE
     Indication: BENIGN PROSTATIC HYPERPLASIA
     Dosage: 5 MILLIGRAM, QD
     Route: 048
     Dates: start: 20190928
  41. FLOMAX [Concomitant]
     Active Substance: TAMSULOSIN HYDROCHLORIDE
     Indication: URINARY RETENTION
  42. GADAVIST [Concomitant]
     Active Substance: GADOBUTROL
     Indication: IMAGING PROCEDURE
     Dosage: 7.5 MILLILITER, SINGLE
     Route: 042
     Dates: start: 20190927, end: 20190927
  43. ZOFRAN [Concomitant]
     Active Substance: ONDANSETRON HYDROCHLORIDE
     Indication: VOMITING
     Dosage: 4 MILLIGRAM, PRN
     Route: 048
     Dates: start: 20190927
  44. DEXAMETHASONE. [Concomitant]
     Active Substance: DEXAMETHASONE
     Indication: PROPHYLAXIS
     Dosage: 10 MILLIGRAM, Q3W
     Route: 042
     Dates: start: 20160523, end: 20190320
  45. ENCORAFENIB [Concomitant]
     Active Substance: ENCORAFENIB
     Indication: MALIGNANT MELANOMA STAGE III
     Dosage: 225 MILLIGRAM, BID
     Route: 048
     Dates: start: 20190117
  46. EPIGALLOCATECHIN GALLATE [Concomitant]
     Active Substance: EPIGALLOCATECHIN GALLATE
     Indication: AMYLOIDOSIS
     Dosage: 800 MILLIGRAM, QD
     Route: 048
     Dates: start: 20130918
  47. PROSCAR [Concomitant]
     Active Substance: FINASTERIDE
     Indication: URINARY RETENTION
  48. GADAVIST [Concomitant]
     Active Substance: GADOBUTROL
     Dosage: 7 MILLILITER, SINGLE
     Route: 042
     Dates: start: 20191025, end: 20191025
  49. LACTATED RINGERS SOLUTION [Concomitant]
     Active Substance: CALCIUM CHLORIDE\POTASSIUM CHLORIDE\SODIUM CHLORIDE\SODIUM LACTATE
     Indication: ANAESTHESIA
     Dosage: UNK
     Route: 042
     Dates: start: 20190927, end: 20190927
  50. PROTONIX [Concomitant]
     Active Substance: PANTOPRAZOLE SODIUM
     Indication: NAUSEA
     Dosage: 40 MILLIGRAM, BID
     Route: 042
     Dates: start: 20190926, end: 20190928

REACTIONS (3)
  - Metastatic malignant melanoma [Fatal]
  - Confusional state [Fatal]
  - Metastases to meninges [Fatal]

NARRATIVE: CASE EVENT DATE: 20190926
